FAERS Safety Report 10766685 (Version 2)
Quarter: 2015Q3

REPORT INFORMATION
  Report Type: Spontaneous
  Country: US (occurrence: US)
  Receive Date: 20150205
  Receipt Date: 20150721
  Transmission Date: 20151125
  Serious: Yes (Hospitalization)
  Sender: FDA-Public Use
  Company Number: US-BAYER-2015-017007

PATIENT
  Age: 29 Year
  Sex: Female
  Weight: 77.98 kg

DRUGS (9)
  1. YASMIN [Suspect]
     Active Substance: DROSPIRENONE\ETHINYL ESTRADIOL
     Dosage: UNK
     Dates: start: 20091117, end: 20100106
  2. NOVOLOG [Concomitant]
     Active Substance: INSULIN ASPART
  3. GIANVI [Suspect]
     Active Substance: DROSPIRENONE\ETHINYL ESTRADIOL
     Dosage: UNK
     Dates: start: 20091117, end: 20100106
  4. OCELLA [Suspect]
     Active Substance: DROSPIRENONE\ETHINYL ESTRADIOL
     Dosage: UNK
     Dates: start: 20091117, end: 20100106
  5. MOTRIN [Concomitant]
     Active Substance: IBUPROFEN
  6. INSULIN [Concomitant]
     Active Substance: INSULIN NOS
  7. YAZ [Suspect]
     Active Substance: DROSPIRENONE\ETHINYL ESTRADIOL
     Dosage: UNK
     Dates: start: 20091117, end: 20100106
  8. LANTUS [Concomitant]
     Active Substance: INSULIN GLARGINE
  9. SENOKOT [Concomitant]
     Active Substance: SENNOSIDES

REACTIONS (10)
  - Injury [None]
  - Emotional distress [None]
  - Psychological trauma [None]
  - Anhedonia [None]
  - Fear of disease [None]
  - Pulmonary embolism [None]
  - Anxiety [None]
  - Pain [None]
  - Deep vein thrombosis [None]
  - Subclavian artery occlusion [None]

NARRATIVE: CASE EVENT DATE: 201001
